FAERS Safety Report 10270881 (Version 1)
Quarter: 2014Q1

REPORT INFORMATION
  Report Type: Spontaneous
  Country: US (occurrence: None)
  Receive Date: 20140306
  Receipt Date: 20140306
  Transmission Date: 20141002
  Serious: Yes (Hospitalization, Other)
  Sender: FDA-Public Use
  Company Number: 163-21880-13082330

PATIENT
  Age: 58 Year
  Sex: Female
  Weight: 47.6 kg

DRUGS (6)
  1. REVLIMID [Suspect]
     Indication: PLASMA CELL MYELOMA
     Route: 048
     Dates: start: 201212
  2. DEXAMETHASONE (DEXAMETHASONE) (TABLETS) [Concomitant]
  3. LIPITOR (ATORVASTATIN) (TABLETS) [Concomitant]
  4. GABAPENTIN (GABAPENTIN) (CAPSULES) [Concomitant]
  5. SERTRALINE HCL (SERTRALINE HYDROCHLORIDE) (TABLETS) [Concomitant]
  6. ASPIRIN (ACETYLSALICYLIC ACID) (TABLETS) [Concomitant]

REACTIONS (4)
  - Hypersensitivity [None]
  - Swelling face [None]
  - Eye swelling [None]
  - Cerebral thrombosis [None]
